FAERS Safety Report 20434760 (Version 2)
Quarter: 2022Q2

REPORT INFORMATION
  Report Type: Report from Study
  Country: EG (occurrence: EG)
  Receive Date: 20220206
  Receipt Date: 20220502
  Transmission Date: 20220720
  Serious: Yes (Other)
  Sender: FDA-Public Use
  Company Number: EG-NOVARTISPH-NVSC2022EG023426

PATIENT
  Age: 13 Year
  Sex: Female

DRUGS (4)
  1. OMNITROPE [Suspect]
     Active Substance: SOMATROPIN
     Indication: Growth hormone deficiency
     Dosage: 1.3 MG, QD
     Route: 058
     Dates: start: 20200403, end: 202108
  2. VITAMIN D [Concomitant]
     Active Substance: VITAMIN D NOS
     Indication: Supplementation therapy
     Dosage: UNK
     Route: 065
  3. TRESIBA [Concomitant]
     Active Substance: INSULIN DEGLUDEC
     Indication: Type 1 diabetes mellitus
     Dosage: 20 IU, QD
     Route: 058
     Dates: start: 202108
  4. LANTUS [Concomitant]
     Active Substance: INSULIN GLARGINE
     Indication: Type 1 diabetes mellitus
     Dosage: 20 UNITS DAILY
     Route: 058
     Dates: start: 20080228, end: 202108

REACTIONS (6)
  - Blood glucose increased [Recovered/Resolved]
  - Pollakiuria [Recovered/Resolved]
  - Thirst [Recovered/Resolved]
  - Goitre [Recovering/Resolving]
  - Blood thyroid stimulating hormone increased [Recovering/Resolving]
  - Drug ineffective [Not Recovered/Not Resolved]

NARRATIVE: CASE EVENT DATE: 20200403
